FAERS Safety Report 24799699 (Version 1)
Quarter: 2025Q1

REPORT INFORMATION
  Report Type: Spontaneous
  Country: US (occurrence: US)
  Receive Date: 20250102
  Receipt Date: 20250102
  Transmission Date: 20250409
  Serious: No
  Sender: SANOFI AVENTIS
  Company Number: US-SA-2024SA384951

PATIENT
  Sex: Male
  Weight: 81.82 kg

DRUGS (12)
  1. DUPIXENT [Suspect]
     Active Substance: DUPILUMAB
     Indication: Dermatitis
     Dosage: 300 MG, QOW
     Route: 058
     Dates: start: 202312
  2. NYSTATIN [Concomitant]
     Active Substance: NYSTATIN
  3. FARXIGA [Concomitant]
     Active Substance: DAPAGLIFLOZIN PROPANEDIOL
  4. FLUDROCORTISONE ACETATE [Concomitant]
     Active Substance: FLUDROCORTISONE ACETATE
  5. AMMONIUM LACTATE [Concomitant]
     Active Substance: AMMONIUM LACTATE
  6. CLONAZEPAM [Concomitant]
     Active Substance: CLONAZEPAM
  7. UNITHROID [Concomitant]
     Active Substance: LEVOTHYROXINE SODIUM
  8. TACROLIMUS [Concomitant]
     Active Substance: TACROLIMUS
  9. LINZESS [Concomitant]
     Active Substance: LINACLOTIDE
  10. BREO ELLIPTA [Concomitant]
     Active Substance: FLUTICASONE FUROATE\VILANTEROL TRIFENATATE
  11. IPRATROPIUM BROMIDE [Concomitant]
     Active Substance: IPRATROPIUM BROMIDE
  12. MONTELUKAST SODIUM [Concomitant]
     Active Substance: MONTELUKAST SODIUM

REACTIONS (3)
  - Eczema [Unknown]
  - Skin discharge [Unknown]
  - Product use in unapproved indication [Unknown]
